FAERS Safety Report 13992872 (Version 10)
Quarter: 2023Q2

REPORT INFORMATION
  Report Type: Report from Study
  Country: ES (occurrence: ES)
  Receive Date: 20170920
  Receipt Date: 20230403
  Transmission Date: 20230722
  Serious: Yes (Hospitalization, Other)
  Sender: FDA-Public Use
  Company Number: ES-ABBVIE-17P-144-2082124-00

PATIENT
  Age: 62 Year
  Sex: Male

DRUGS (3)
  1. HUMIRA [Suspect]
     Active Substance: ADALIMUMAB
     Indication: Colitis ulcerative
     Route: 058
     Dates: start: 20140905, end: 20170320
  2. EXFORGE [Concomitant]
     Active Substance: AMLODIPINE BESYLATE\VALSARTAN
     Indication: Hypertension
     Dosage: 10/160/25 MG
     Route: 048
     Dates: start: 20140616, end: 20170704
  3. EXFORGE [Concomitant]
     Active Substance: AMLODIPINE BESYLATE\VALSARTAN
     Indication: Hypertension
     Dosage: 10/160/12.5 MG, DOSE DECREASED
     Route: 048
     Dates: start: 20170705

REACTIONS (4)
  - Rectal stenosis [Recovered/Resolved]
  - Urethral stenosis [Recovered/Resolved]
  - Anaemia [Recovered/Resolved]
  - Urethral stenosis [Not Recovered/Not Resolved]

NARRATIVE: CASE EVENT DATE: 20170329
